FAERS Safety Report 7704032-7 (Version None)
Quarter: 2011Q3

REPORT INFORMATION
  Report Type: 
  Country: None (occurrence: None)
  Receive Date: 20110729
  Receipt Date: 20101207
  Transmission Date: 20111222
  Serious: Yes (Other)
  Sender: FDA-Public Use
  Company Number: CERZ-1001635

PATIENT
  Age: 12 Year
  Sex: Male
  Weight: 53.3 kg

DRUGS (1)
  1. CEREZYME [Suspect]
     Indication: GAUCHER'S DISEASE
     Dosage: 30 U/KG, Q2W, INTRAVENOUS
     Route: 042
     Dates: start: 20020601

REACTIONS (2)
  - VOMITING [None]
  - DIARRHOEA [None]
